FAERS Safety Report 5753052-0 (Version None)
Quarter: 2008Q2

REPORT INFORMATION
  Report Type: 
  Country: None (occurrence: None)
  Receive Date: 20080527
  Receipt Date: 20080508
  Transmission Date: 20081010
  Serious: Yes (Other)
  Sender: FDA-Public Use
  Company Number: 2008S1007857

PATIENT
  Age: 69 Year
  Sex: Female

DRUGS (8)
  1. ENDEP [Suspect]
     Indication: ANXIETY
     Dosage: 50 MG; AT BEDTIME; ORAL
     Route: 048
     Dates: start: 20070101
  2. PROTOS [Concomitant]
  3. BRUFEN [Concomitant]
  4. RANI [Concomitant]
  5. ARATAC [Concomitant]
  6. AVAPRO [Concomitant]
  7. WARFARIN SODIUM [Concomitant]
  8. ZOCOR [Concomitant]

REACTIONS (6)
  - CONDITION AGGRAVATED [None]
  - DRY MOUTH [None]
  - DYSGEUSIA [None]
  - HALLUCINATION [None]
  - HYPERHIDROSIS [None]
  - LIP DRY [None]
